FAERS Safety Report 10907210 (Version 1)
Quarter: 2015Q1

REPORT INFORMATION
  Report Type: Spontaneous
  Country: US (occurrence: None)
  Receive Date: 20150309
  Receipt Date: 20150309
  Transmission Date: 20150721
  Serious: Yes (Other)
  Sender: FDA-Public Use
  Company Number: US-H14001-15-00340

PATIENT
  Age: 33 Year
  Sex: Male

DRUGS (2)
  1. SUMATRIPTAN (SUMATRIPTAN) [Suspect]
     Active Substance: SUMATRIPTAN
     Indication: MIGRAINE
     Dosage: (50 MG, ONCE), UNKNOWN
  2. NAFCILLIN [Concomitant]
     Active Substance: NAFCILLIN\NAFCILLIN SODIUM

REACTIONS (9)
  - Agitation [None]
  - Abdominal pain [None]
  - Hypotension [None]
  - Oxygen saturation decreased [None]
  - Anxiety [None]
  - Chest discomfort [None]
  - Heart rate increased [None]
  - Troponin [None]
  - Lactic acidosis [None]
